FAERS Safety Report 11420604 (Version 1)
Quarter: 2015Q3

REPORT INFORMATION
  Report Type: Not Available
  Country: ES (occurrence: ES)
  Receive Date: 20150826
  Receipt Date: 20150826
  Transmission Date: 20151125
  Serious: Yes (Disabling)
  Sender: FDA-Public Use
  Company Number: ES-MUNDIPHARMA DS AND PHARMACOVIGILANCE-GBR-2015-0030457

PATIENT
  Age: 53 Year
  Sex: Male

DRUGS (10)
  1. ZOLPIDEM [Concomitant]
     Active Substance: ZOLPIDEM\ZOLPIDEM TARTRATE
  2. EFFERALGAN [Concomitant]
     Active Substance: ACETAMINOPHEN
  3. DUPHALAC [Concomitant]
     Active Substance: LACTULOSE
  4. HUMALOG MIX [Concomitant]
     Active Substance: INSULIN LISPRO
  5. COZAAR [Concomitant]
     Active Substance: LOSARTAN POTASSIUM
  6. LYRICA [Concomitant]
     Active Substance: PREGABALIN
  7. SEVREDOL 10, COMPRIMIDOS [Concomitant]
  8. HIBOR [Concomitant]
     Active Substance: BEMIPARIN SODIUM
  9. HUMALOG MIX [Concomitant]
     Active Substance: INSULIN LISPRO
  10. MST 60 CONTINUS, COMPRIMIDOS DE 60 MG [Suspect]
     Active Substance: MORPHINE SULFATE
     Indication: METASTATIC PAIN
     Dosage: 60 MG, Q12H
     Route: 048
     Dates: start: 20150204

REACTIONS (2)
  - Tinnitus [Not Recovered/Not Resolved]
  - Hypoacusis [Not Recovered/Not Resolved]

NARRATIVE: CASE EVENT DATE: 20150206
